FAERS Safety Report 6567166-9 (Version None)
Quarter: 2010Q1

REPORT INFORMATION
  Report Type: 
  Country: None (occurrence: None)
  Receive Date: 20100202
  Receipt Date: 20100122
  Transmission Date: 20100710
  Serious: Yes (Other)
  Sender: FDA-Public Use
  Company Number: JP-PFIZER INC-2010012859

PATIENT
  Age: 66 Year

DRUGS (2)
  1. XALATAN [Suspect]
     Indication: OCULAR HYPERTENSION
     Dosage: UNK
     Route: 047
  2. CARTEOLOL HYDROCHLORIDE [Suspect]
     Indication: OCULAR HYPERTENSION
     Route: 047
     Dates: end: 20100120

REACTIONS (3)
  - DRUG INEFFECTIVE [None]
  - HYPERAEMIA [None]
  - INTRAOCULAR PRESSURE INCREASED [None]
